FAERS Safety Report 9466000 (Version 2)
Quarter: 2013Q3

REPORT INFORMATION
  Report Type: Spontaneous
  Country: US (occurrence: US)
  Receive Date: 20130820
  Receipt Date: 20130820
  Transmission Date: 20140515
  Serious: Yes (Other)
  Sender: FDA-Public Use
  Company Number: US-MYLANLABS-2012S1019878

PATIENT
  Age: 58 Year
  Sex: Female
  Weight: 74.84 kg

DRUGS (3)
  1. TEMAZEPAM CAPSULES [Suspect]
     Indication: INSOMNIA
     Route: 048
     Dates: start: 201209, end: 201209
  2. LEVOTHYROXINE [Concomitant]
     Indication: HYPOTHYROIDISM
  3. EPIPEN [Concomitant]
     Indication: HYPERSENSITIVITY

REACTIONS (1)
  - Throat tightness [Recovered/Resolved]
